FAERS Safety Report 10248882 (Version 1)
Quarter: 2014Q2

REPORT INFORMATION
  Report Type: Spontaneous
  Country: BR (occurrence: BR)
  Receive Date: 20140620
  Receipt Date: 20140620
  Transmission Date: 20141212
  Serious: Yes (Other)
  Sender: FDA-Public Use
  Company Number: BR-JNJFOC-20140607899

PATIENT
  Age: 43 Year
  Sex: Female

DRUGS (1)
  1. EVRA [Suspect]
     Indication: CONTRACEPTION
     Route: 062
     Dates: start: 201310

REACTIONS (6)
  - Cellulitis [Unknown]
  - Pain in extremity [Unknown]
  - Fluid retention [Unknown]
  - Treatment noncompliance [Unknown]
  - Vaginal haemorrhage [Unknown]
  - Drug dose omission [Unknown]
